FAERS Safety Report 14911006 (Version 1)
Quarter: 2018Q2

REPORT INFORMATION
  Report Type: Spontaneous
  Country: US (occurrence: US)
  Receive Date: 20180517
  Receipt Date: 20180517
  Transmission Date: 20180711
  Serious: Yes (Other)
  Sender: FDA-Public Use
  Company Number: US-BAXTER-2018BAX014304

PATIENT
  Sex: Female

DRUGS (6)
  1. ADRIAMYCIN [Suspect]
     Active Substance: DOXORUBICIN HYDROCHLORIDE
     Indication: METASTASIS
     Dosage: AC CHEMOTHERAPY
     Route: 065
  2. CYCLOPHOSPHAMIDE FOR INJECTION, USP [Suspect]
     Active Substance: CYCLOPHOSPHAMIDE
     Indication: METASTASIS
     Dosage: AC CHEMOTHERAPY
     Route: 065
  3. CYCLOPHOSPHAMIDE FOR INJECTION, USP [Suspect]
     Active Substance: CYCLOPHOSPHAMIDE
     Indication: TRIPLE NEGATIVE BREAST CANCER
  4. CYCLOPHOSPHAMIDE FOR INJECTION, USP [Suspect]
     Active Substance: CYCLOPHOSPHAMIDE
     Indication: METASTASES TO CENTRAL NERVOUS SYSTEM
  5. ADRIAMYCIN [Suspect]
     Active Substance: DOXORUBICIN HYDROCHLORIDE
     Indication: TRIPLE NEGATIVE BREAST CANCER
  6. ADRIAMYCIN [Suspect]
     Active Substance: DOXORUBICIN HYDROCHLORIDE
     Indication: METASTASES TO CENTRAL NERVOUS SYSTEM

REACTIONS (8)
  - Fall [Unknown]
  - Concussion [Unknown]
  - Asthenia [Unknown]
  - Foot fracture [Unknown]
  - Reading disorder [Unknown]
  - Pain [Unknown]
  - Thrombosis [Unknown]
  - Memory impairment [Unknown]
